FAERS Safety Report 25231456 (Version 3)
Quarter: 2025Q3

REPORT INFORMATION
  Report Type: Spontaneous
  Country: US (occurrence: US)
  Receive Date: 20250423
  Receipt Date: 20250927
  Transmission Date: 20251020
  Serious: No
  Sender: SANOFI AVENTIS
  Company Number: US-SA-2025SA116932

PATIENT
  Age: 27 Year
  Sex: Female

DRUGS (5)
  1. DUPIXENT [Suspect]
     Active Substance: DUPILUMAB
     Indication: Eosinophilic oesophagitis
     Dosage: 300 MG, QW
     Route: 058
     Dates: start: 20250321, end: 2025
  2. LABETALOL [Concomitant]
     Active Substance: LABETALOL
  3. LABETALOL [Concomitant]
     Active Substance: LABETALOL
  4. OXYCODONE [Concomitant]
     Active Substance: OXYCODONE
  5. MIRENA [Concomitant]
     Active Substance: LEVONORGESTREL

REACTIONS (7)
  - Muscle rigidity [Recovered/Resolved]
  - Impaired quality of life [Not Recovered/Not Resolved]
  - Injection site mass [Not Recovered/Not Resolved]
  - Injection site warmth [Not Recovered/Not Resolved]
  - Injection site erythema [Not Recovered/Not Resolved]
  - Injection site swelling [Not Recovered/Not Resolved]
  - Injection site pain [Not Recovered/Not Resolved]

NARRATIVE: CASE EVENT DATE: 20250101
